FAERS Safety Report 9292658 (Version 5)
Quarter: 2014Q2

REPORT INFORMATION
  Report Type: Spontaneous
  Country: US (occurrence: US)
  Receive Date: 20130516
  Receipt Date: 20140603
  Transmission Date: 20141212
  Serious: Yes (Hospitalization, Disabling, Other)
  Sender: FDA-Public Use
  Company Number: US-009507513-1305USA005515

PATIENT
  Sex: Female

DRUGS (3)
  1. FOSAMAX [Suspect]
     Indication: OSTEOPENIA
     Dosage: 10 MG, UNK
     Route: 048
     Dates: start: 200103, end: 200209
  2. FOSAMAX [Suspect]
     Dosage: 70 MG, UNK
     Route: 048
     Dates: start: 200210
  3. ALENDRONATE SODIUM [Suspect]
     Indication: OSTEOPENIA
     Dosage: 70 MG, UNK
     Route: 048
     Dates: start: 20080526, end: 201109

REACTIONS (39)
  - Open reduction of fracture [Unknown]
  - Open reduction of fracture [Unknown]
  - Device failure [Unknown]
  - Intra-aortic balloon placement [Unknown]
  - Surgery [Unknown]
  - Debridement [Unknown]
  - Osteonecrosis of jaw [Not Recovered/Not Resolved]
  - Jaw fracture [Unknown]
  - Biopsy bone [Unknown]
  - Biopsy bone [Unknown]
  - Biopsy bone [Unknown]
  - Periodontal operation [Unknown]
  - Impaired healing [Unknown]
  - Gingival disorder [Unknown]
  - Gingivitis [Unknown]
  - Fistula [Unknown]
  - Jaw operation [Unknown]
  - Hypertension [Unknown]
  - Type 2 diabetes mellitus [Unknown]
  - Rheumatoid arthritis [Unknown]
  - Device failure [Unknown]
  - Oral infection [Unknown]
  - Streptococcal infection [Unknown]
  - Device related infection [Unknown]
  - Fistula [Unknown]
  - Paraesthesia oral [Recovering/Resolving]
  - Wound dehiscence [Unknown]
  - Gingival disorder [Unknown]
  - Blood potassium increased [Unknown]
  - Hypercholesterolaemia [Unknown]
  - Cataract operation [Unknown]
  - Soft tissue inflammation [Unknown]
  - Dental operation [Unknown]
  - Medical device removal [Unknown]
  - Osteoporosis [Unknown]
  - Fistula [Unknown]
  - Abdominal discomfort [Unknown]
  - Treatment failure [Unknown]
  - Osteomyelitis [Not Recovered/Not Resolved]
